FAERS Safety Report 10484546 (Version 2)
Quarter: 2014Q4

REPORT INFORMATION
  Report Type: Spontaneous
  Country: PE (occurrence: PE)
  Receive Date: 20140930
  Receipt Date: 20141006
  Transmission Date: 20150528
  Serious: Yes (Other)
  Sender: FDA-Public Use
  Company Number: PE-PFIZER INC-2014265159

PATIENT
  Age: 79 Year
  Sex: Male

DRUGS (2)
  1. XALACOM [Suspect]
     Active Substance: LATANOPROST\TIMOLOL MALEATE
     Indication: GLAUCOMA
     Dosage: ONE DROP IN EACH EYE, AT NIGHT, 1X/DAY
     Route: 047
     Dates: start: 201408, end: 201409
  2. XALATAN [Suspect]
     Active Substance: LATANOPROST
     Indication: GLAUCOMA
     Dosage: ONE DROP IN EACH EYE, AT NIGHT, 1X/DAY
     Route: 047
     Dates: start: 201406, end: 201408

REACTIONS (2)
  - Visual acuity reduced [Unknown]
  - Glaucoma [Unknown]
